FAERS Safety Report 6753618-5 (Version None)
Quarter: 2010Q2

REPORT INFORMATION
  Report Type: 
  Country: None (occurrence: None)
  Receive Date: 20100603
  Receipt Date: 20100526
  Transmission Date: 20101027
  Serious: Yes (Death, Life-Threatening, Disabling)
  Sender: FDA-Public Use
  Company Number: CN-ROCHE-694621

PATIENT
  Sex: Male
  Weight: 74 kg

DRUGS (3)
  1. BEVACIZUMAB [Suspect]
     Indication: GASTRIC CANCER
     Dosage: TAKEN ON DAY 1. DOSE BLINDED, FORM INFUSION. LAST DOSE PRIOR TO SAE: 03 MARCH 2010
     Route: 042
     Dates: start: 20100201
  2. CAPECITABINE [Suspect]
     Indication: GASTRIC CANCER
     Dosage: TAKEN FOR TWO WEEKS AFTER EVERY THREE WEEKS. LAST DOSE PRIOR TO SAE: 7 MARCH 2010
     Route: 048
     Dates: start: 20100201
  3. CISPLATIN [Suspect]
     Indication: GASTRIC CANCER
     Dosage: TAKEN ON DAY 1, FORM INFUSION
     Route: 042
     Dates: start: 20100201

REACTIONS (5)
  - BLOOD PRESSURE INCREASED [None]
  - CEREBRAL INFARCTION [None]
  - HEART RATE INCREASED [None]
  - UPPER GASTROINTESTINAL HAEMORRHAGE [None]
  - VISUAL IMPAIRMENT [None]
